FAERS Safety Report 9455670 (Version 1)
Quarter: 2013Q3

REPORT INFORMATION
  Report Type: Spontaneous
  Country: US (occurrence: US)
  Receive Date: 20130813
  Receipt Date: 20130813
  Transmission Date: 20140515
  Serious: No
  Sender: FDA-Public Use
  Company Number: US-TEVA-405177USA

PATIENT
  Age: 35 Year
  Sex: Female
  Weight: 53.57 kg

DRUGS (4)
  1. PARAGARD 380A [Suspect]
     Indication: CONTRACEPTION
     Route: 015
     Dates: start: 2004
  2. METFORMIN [Concomitant]
     Indication: POLYCYSTIC OVARIES
  3. SPIRONOLACTONE [Concomitant]
     Indication: POLYCYSTIC OVARIES
  4. ADDERALL [Concomitant]
     Indication: ATTENTION DEFICIT/HYPERACTIVITY DISORDER

REACTIONS (1)
  - Medical device complication [Not Recovered/Not Resolved]
